FAERS Safety Report 8870851 (Version 1)
Quarter: 2012Q4

REPORT INFORMATION
  Report Type: 
  Country: US (occurrence: US)
  Receive Date: 20121026
  Receipt Date: 20121026
  Transmission Date: 20130627
  Serious: No
  Sender: FDA-Public Use
  Company Number: US-AMGEN-USASP2012046608

PATIENT
  Age: 48 Year
  Sex: Female
  Weight: 183 kg

DRUGS (13)
  1. ENBREL [Suspect]
     Indication: PRODUCT USED FOR UNKNOWN INDICATION
     Dosage: 50 mg, qwk
  2. NAPROXEN [Concomitant]
     Dosage: 100 mg, UNK
  3. PREDNISONE [Concomitant]
     Dosage: 100 mg, UNK
  4. TOPAMAX [Concomitant]
     Dosage: 100 mg, UNK
  5. ZOLPIDEM [Concomitant]
     Dosage: 5 mg, UNK
  6. VICODIN [Concomitant]
     Dosage: 7.5-750
  7. NIZATIDINE [Concomitant]
     Dosage: 150 mg, UNK
  8. IMITREX                            /01044801/ [Concomitant]
     Dosage: 4 mg/0.5
  9. LEVOTHYROXINE [Concomitant]
     Dosage: 88MCG
  10. DOXEPIN [Concomitant]
     Dosage: 10 mg, UNK
  11. MULTIVITAMIN                       /00097801/ [Concomitant]
  12. CLARITIN                           /00413701/ [Concomitant]
     Dosage: 10 mg, UNK
  13. MENOPAUSE FORMULA [Concomitant]

REACTIONS (5)
  - Stomatitis [Unknown]
  - Skin ulcer [Unknown]
  - Impaired healing [Unknown]
  - Injection site erythema [Unknown]
  - Injection site pruritus [Unknown]
